FAERS Safety Report 8921018 (Version 2)
Quarter: 2013Q1

REPORT INFORMATION
  Report Type: Spontaneous
  Country: CN (occurrence: CN)
  Receive Date: 20121121
  Receipt Date: 20130123
  Transmission Date: 20140127
  Serious: Yes (Hospitalization)
  Sender: FDA-Public Use
  Company Number: CN-ELI_LILLY_AND_COMPANY-CN201211004288

PATIENT
  Age: 50 Year
  Sex: Female

DRUGS (2)
  1. DULOXETINE HYDROCHLORIDE [Suspect]
     Indication: MAJOR DEPRESSION
     Dosage: 60 MG, QD
     Dates: start: 20110910
  2. ZIPRASIDONE [Concomitant]
     Dosage: 40 MG, QD

REACTIONS (5)
  - Inappropriate antidiuretic hormone secretion [Recovered/Resolved]
  - Rhabdomyolysis [Recovered/Resolved]
  - Dry mouth [Recovered/Resolved]
  - Polydipsia [Recovered/Resolved]
  - Polyuria [Recovered/Resolved]
